FAERS Safety Report 12900018 (Version 1)
Quarter: 2016Q4

REPORT INFORMATION
  Report Type: Report from Study
  Country: BR (occurrence: BR)
  Receive Date: 20161101
  Receipt Date: 20161101
  Transmission Date: 20170207
  Serious: Yes (Hospitalization, Other)
  Sender: FDA-Public Use
  Company Number: BR-BAYER-2016-205289

PATIENT
  Age: 49 Year
  Sex: Male

DRUGS (2)
  1. NEXAVAR [Suspect]
     Active Substance: SORAFENIB
     Indication: HEPATIC CANCER
     Dosage: 4 DF, QD (200MG)
     Route: 048
     Dates: start: 20160831, end: 20161011
  2. LIPITOR [Concomitant]
     Active Substance: ATORVASTATIN CALCIUM
     Dosage: 1 DF, QD
     Route: 048

REACTIONS (6)
  - Blister [Recovered/Resolved]
  - Gait disturbance [Recovered/Resolved]
  - Surgery [None]
  - Sensory disturbance [Recovered/Resolved]
  - Hyperkeratosis [Not Recovered/Not Resolved]
  - Liver transplant [None]

NARRATIVE: CASE EVENT DATE: 20161011
